FAERS Safety Report 7488466-4 (Version None)
Quarter: 2011Q2

REPORT INFORMATION
  Report Type: 
  Country: None (occurrence: None)
  Receive Date: 20110518
  Receipt Date: 20110114
  Transmission Date: 20111010
  Serious: Yes (Hospitalization)
  Sender: FDA-Public Use
  Company Number: US-BAYER-201023244NA

PATIENT
  Age: 41 Year
  Sex: Female
  Weight: 92.517 kg

DRUGS (26)
  1. YAZ [Suspect]
     Indication: DYSMENORRHOEA
  2. HYDROCHLOROTHIAZIDE [Concomitant]
  3. CITALOPRAM [Concomitant]
     Dosage: UNK
     Dates: start: 20070401, end: 20080501
  4. BUPROPION [Concomitant]
     Dosage: UNK
     Dates: start: 20070401, end: 20080501
  5. VALTREX [Concomitant]
     Dosage: UNK
     Dates: start: 20070401, end: 20080501
  6. AMOXICILLIN [Concomitant]
     Dosage: UNK
     Dates: start: 20070401, end: 20080501
  7. PROTONIX [Concomitant]
     Dosage: 40 MG/D, UNK
  8. DEXLANSOPRAZOLE [Concomitant]
     Indication: GASTRIC DISORDER
  9. LORAZEPAM [Concomitant]
     Dosage: UNK
     Dates: start: 20070401, end: 20080501
  10. WELLBUTRIN [Concomitant]
     Dosage: UNK
     Dates: start: 20070401, end: 20080501
  11. YAZ [Suspect]
     Indication: ORAL CONTRACEPTION
     Dosage: UNK
     Route: 048
     Dates: start: 20070401, end: 20080501
  12. SEROQUEL [Concomitant]
     Dosage: UNK
     Dates: start: 20070401, end: 20080501
  13. ZOLPIDEM [Concomitant]
     Dosage: UNK
     Dates: start: 20070401, end: 20080501
  14. YASMIN [Suspect]
     Indication: ORAL CONTRACEPTION
     Dosage: UNK
     Route: 048
     Dates: start: 20060630, end: 20061215
  15. MOTRIN [Concomitant]
  16. ALLEGRA [Concomitant]
     Indication: MULTIPLE ALLERGIES
  17. LAMICTAL [Concomitant]
     Dosage: UNK
     Dates: start: 20070301, end: 20080501
  18. ASACOL [Concomitant]
     Indication: COLITIS
     Dosage: 400 MG, UNK
  19. FEXOFENADINE [Concomitant]
     Dosage: UNK
     Dates: start: 20070401, end: 20080501
  20. TOPAMAX [Concomitant]
     Dosage: UNK
     Dates: start: 20070401, end: 20080501
  21. OSCAL [Concomitant]
     Dosage: 1000 MG/D, UNK
  22. SERTRALINE HYDROCHLORIDE [Concomitant]
     Dosage: UNK
     Dates: start: 20070401, end: 20080501
  23. ULTRAM [Concomitant]
  24. CHROMIUM CHLORIDE [Concomitant]
     Dosage: 200 MG/D, UNK
  25. AMBIEN [Concomitant]
     Dosage: 5 MG, UNK
  26. ACYCLOVIR [Concomitant]
     Indication: ACNE

REACTIONS (2)
  - DEEP VEIN THROMBOSIS [None]
  - PELVIC VENOUS THROMBOSIS [None]
